FAERS Safety Report 8862362 (Version 1)
Quarter: 2012Q4

REPORT INFORMATION
  Report Type: 
  Country: US (occurrence: US)
  Receive Date: 20121026
  Receipt Date: 20121026
  Transmission Date: 20130627
  Serious: Yes (Hospitalization)
  Sender: FDA-Public Use
  Company Number: US-BAYER-2012-111914

PATIENT
  Age: 47 Year
  Sex: Female
  Weight: 58.87 kg

DRUGS (20)
  1. YASMIN [Suspect]
  2. YAZ [Suspect]
  3. DOXYCYCLINE [Concomitant]
     Dosage: 40 mg, UNK
     Dates: start: 20080317, end: 20080613
  4. NAPROXEN [Concomitant]
     Dosage: 500 mg, UNK
     Dates: start: 20080424
  5. NAPROXEN [Concomitant]
     Dosage: 500 mg, UNK
     Dates: start: 20080607
  6. AZITHROMYCIN [Concomitant]
     Dosage: 250 mg, UNK
     Dates: start: 20080424
  7. AZITHROMYCIN [Concomitant]
     Dosage: 250 mg, UNK
     Dates: start: 20080502
  8. PARACETAMOL W/TRAMADOL [Concomitant]
     Dosage: 37.5-32
     Dates: start: 20080424
  9. CLINDAMYCIN [Concomitant]
     Dosage: 150 mg, UNK
     Dates: start: 20080425
  10. HYDROCODONE W/APAP [Concomitant]
     Dosage: 7.5/750mg
     Dates: start: 20080425
  11. HYDROCODONE W/APAP [Concomitant]
     Dosage: 5/500mg
     Dates: start: 20080429
  12. TRI-LUMA [Concomitant]
     Dosage: UNK
     Dates: start: 20080502
  13. SULFACETAMIDE SODIUM W/SULFUR [Concomitant]
     Dosage: UNK
     Dates: start: 20080502
  14. CLINDAMYCIN [Concomitant]
     Dosage: UNK
     Route: 067
     Dates: start: 20080523, end: 20080621
  15. ALDARA [Concomitant]
     Dosage: 5 %,UNK
     Dates: start: 20080527
  16. FEXOFENADINE [Concomitant]
     Dosage: 180 mg, UNK
     Dates: start: 20080610
  17. ZYVOX [Concomitant]
     Indication: INFECTION
     Dosage: 600 mg, UNK
  18. DOXYCYCLINE [Concomitant]
     Indication: INFECTION
  19. BACITRACIN [Concomitant]
  20. VIBRAMYCIN [Concomitant]

REACTIONS (1)
  - Deep vein thrombosis [None]
